FAERS Safety Report 9331465 (Version 3)
Quarter: 2013Q2

REPORT INFORMATION
  Report Type: Report from Study
  Country: US (occurrence: US)
  Receive Date: 20130605
  Receipt Date: 20130618
  Transmission Date: 20140414
  Serious: Yes (Hospitalization, Other)
  Sender: FDA-Public Use
  Company Number: US-ABBOTT-13P-163-1098991-00

PATIENT
  Age: 50 Year
  Sex: 0
  Weight: 128.48 kg

DRUGS (9)
  1. HUMIRA [Suspect]
     Indication: CROHN^S DISEASE
     Dosage: STARTING DOSE
     Dates: start: 20130518, end: 20130518
  2. HUMIRA [Suspect]
     Dosage: ONLY 40 MG DOSE RECEIVED
     Dates: start: 20130531
  3. SYNTHROID [Concomitant]
     Indication: THYROID DISORDER
     Dosage: 150 MCG DAILY
  4. GENERIC LOMOTIL [Concomitant]
     Indication: PRODUCT USED FOR UNKNOWN INDICATION
     Dosage: 1-2 TABLETS EVERY 6 HOURS AS NEEDED
  5. BENICAR HCT [Concomitant]
     Indication: HYPERTENSION
     Dosage: 40/12.5 MG DAILY
  6. VITAMIN E [Concomitant]
     Indication: PRODUCT USED FOR UNKNOWN INDICATION
     Dosage: 400 IU DAILY
  7. VITAMIN B12 [Concomitant]
     Indication: PRODUCT USED FOR UNKNOWN INDICATION
     Dosage: 1000 MG DAILY
  8. VITAMIN D [Concomitant]
     Indication: PRODUCT USED FOR UNKNOWN INDICATION
     Dosage: 2000 IU DAILY
  9. ALIGN [Concomitant]
     Indication: PROBIOTIC THERAPY

REACTIONS (2)
  - Renal failure acute [Recovered/Resolved]
  - Dehydration [Recovered/Resolved]
